FAERS Safety Report 8517427-9 (Version None)
Quarter: 2012Q3

REPORT INFORMATION
  Report Type: 
  Country: None (occurrence: None)
  Receive Date: 20120718
  Receipt Date: 20120713
  Transmission Date: 20120928
  Serious: No
  Sender: FDA-Public Use
  Company Number: US-PFIZER INC-2012132578

PATIENT
  Sex: Male

DRUGS (1)
  1. AZULFIDINE [Suspect]
     Dosage: 500 MG, 2X/DAY

REACTIONS (1)
  - MALAISE [None]
